FAERS Safety Report 4432521-X (Version None)
Quarter: 2004Q3

REPORT INFORMATION
  Report Type: 
  Country: None (occurrence: None)
  Receive Date: 20040818
  Receipt Date: 20040809
  Transmission Date: 20050211
  Serious: Yes (Other)
  Sender: FDA-Public Use
  Company Number: 24876

PATIENT
  Age: 60 Year
  Sex: Female

DRUGS (1)
  1. ALDARA [Suspect]
     Indication: CONDYLOMA ACUMINATUM
     Dosage: 3 IN 1 WEEK (S), TOPICAL
     Route: 061
     Dates: start: 20040625, end: 20040802

REACTIONS (3)
  - CLOSTRIDIUM COLITIS [None]
  - MALAISE [None]
  - WEIGHT DECREASED [None]
